FAERS Safety Report 7382209-0 (Version None)
Quarter: 2011Q1

REPORT INFORMATION
  Report Type: 
  Country: None (occurrence: None)
  Receive Date: 20110329
  Receipt Date: 20110322
  Transmission Date: 20110831
  Serious: Yes (Other)
  Sender: FDA-Public Use
  Company Number: US-GENENTECH-313046

PATIENT
  Sex: Male

DRUGS (3)
  1. ELESTAT [Concomitant]
     Indication: EYE ALLERGY
     Dosage: 2 GTT, PRN
     Route: 047
  2. MEDICATION (UNK INGREDIENT) [Concomitant]
     Indication: NASAL INFLAMMATION
     Dosage: 2 PUFF, QD
     Route: 045
  3. XOLAIR [Suspect]
     Indication: PRODUCT USED FOR UNKNOWN INDICATION
     Dosage: 300 MG, Q2W
     Route: 058
     Dates: start: 20101102

REACTIONS (8)
  - EYE SWELLING [None]
  - EYE PRURITUS [None]
  - LACRIMATION INCREASED [None]
  - ERYTHEMA [None]
  - DYSPNOEA [None]
  - CONJUNCTIVAL HYPERAEMIA [None]
  - PHARYNGEAL OEDEMA [None]
  - DYSPHONIA [None]
